FAERS Safety Report 10205015 (Version 1)
Quarter: 2014Q2

REPORT INFORMATION
  Report Type: Spontaneous
  Country: US (occurrence: US)
  Receive Date: 20140529
  Receipt Date: 20140529
  Transmission Date: 20141212
  Serious: Yes (Other)
  Sender: FDA-Public Use
  Company Number: US-PERRIGO-14US005339

PATIENT
  Age: 26 Year
  Sex: Female
  Weight: 49.89 kg

DRUGS (1)
  1. TIOCONAZOLE 6.5% 426 [Suspect]
     Indication: VULVOVAGINAL MYCOTIC INFECTION
     Dosage: 300 MG, SINGLE
     Route: 067
     Dates: start: 20140519, end: 20140519

REACTIONS (5)
  - Syncope [Recovered/Resolved]
  - Dizziness [Recovered/Resolved]
  - Vulvovaginal pain [Recovered/Resolved]
  - Vulvovaginal swelling [Recovered/Resolved]
  - Vulvovaginal burning sensation [Recovering/Resolving]
